FAERS Safety Report 25481062 (Version 1)
Quarter: 2025Q2

REPORT INFORMATION
  Report Type: Spontaneous
  Country: GB (occurrence: GB)
  Receive Date: 20250625
  Receipt Date: 20250625
  Transmission Date: 20250717
  Serious: Yes (Other)
  Sender: JOHNSON AND JOHNSON
  Company Number: None

PATIENT
  Sex: Male

DRUGS (3)
  1. MIGLUSTAT [Suspect]
     Active Substance: MIGLUSTAT
     Indication: Product used for unknown indication
     Dosage: TAKE ONE CAPSULE (100MG) ONCE DAILY FOR THE FIRST 7 DAYS, THEN TAKE ONE CAPSULE (100MG) TWICE DAILY
     Route: 048
     Dates: start: 20250529
  2. MIGLUSTAT [Suspect]
     Active Substance: MIGLUSTAT
     Route: 048
  3. MIGLUSTAT [Suspect]
     Active Substance: MIGLUSTAT
     Route: 048

REACTIONS (3)
  - Disorientation [Unknown]
  - Balance disorder [Unknown]
  - Mobility decreased [Unknown]
